FAERS Safety Report 8471464-1 (Version None)
Quarter: 2012Q2

REPORT INFORMATION
  Report Type: 
  Country: None (occurrence: None)
  Receive Date: 20120627
  Receipt Date: 20120623
  Transmission Date: 20120825
  Serious: Yes (Death, Other)
  Sender: FDA-Public Use
  Company Number: PHHY2012ES054107

PATIENT

DRUGS (2)
  1. CHEMOTHERAPEUTICS NOS [Concomitant]
  2. IMATINIB MESYLATE [Suspect]
     Indication: ACUTE LYMPHOCYTIC LEUKAEMIA
     Dosage: 260 MG/M2, DAILY

REACTIONS (1)
  - INFECTION [None]
